FAERS Safety Report 13280665 (Version 3)
Quarter: 2018Q2

REPORT INFORMATION
  Report Type: Spontaneous
  Country: US (occurrence: US)
  Receive Date: 20170301
  Receipt Date: 20180615
  Transmission Date: 20180711
  Serious: No
  Sender: FDA-Public Use
  Company Number: PHEH2017US006064

PATIENT
  Age: 61 Year
  Sex: Male

DRUGS (2)
  1. VOTRIENT [Suspect]
     Active Substance: PAZOPANIB HYDROCHLORIDE
     Dosage: UNK
     Route: 048
  2. VOTRIENT [Suspect]
     Active Substance: PAZOPANIB HYDROCHLORIDE
     Indication: MALAISE
     Dosage: 800 MG, QD
     Route: 048
     Dates: start: 20170131

REACTIONS (6)
  - Vomiting [Unknown]
  - Dysgeusia [Unknown]
  - Nausea [Unknown]
  - Diarrhoea [Unknown]
  - Abdominal pain [Unknown]
  - Product use in unapproved indication [Unknown]

NARRATIVE: CASE EVENT DATE: 20180504
